FAERS Safety Report 4534404-3 (Version None)
Quarter: 2004Q4

REPORT INFORMATION
  Report Type: 
  Country: None (occurrence: None)
  Receive Date: 20041222
  Receipt Date: 20031110
  Transmission Date: 20050328
  Serious: No
  Sender: FDA-Public Use
  Company Number: US-BRISTOL-MYERS SQUIBB COMPANY-12431789

PATIENT
  Age: 63 Year
  Sex: Female
  Weight: 63 kg

DRUGS (3)
  1. QUESTRAN LIGHT [Suspect]
     Indication: COLON CANCER
     Route: 048
     Dates: start: 19980101
  2. DYAZIDE [Concomitant]
  3. PRAVACHOL [Concomitant]

REACTIONS (2)
  - BLOOD CHOLESTEROL INCREASED [None]
  - GASTROINTESTINAL DISORDER [None]
